FAERS Safety Report 8219520-7 (Version None)
Quarter: 2012Q1

REPORT INFORMATION
  Report Type: 
  Country: None (occurrence: None)
  Receive Date: 20120319
  Receipt Date: 20120312
  Transmission Date: 20120608
  Serious: Yes (Other)
  Sender: FDA-Public Use
  Company Number: PHHY2012SE022818

PATIENT
  Age: 46 Year
  Sex: Female

DRUGS (12)
  1. OXAZEPAM [Concomitant]
  2. CLOZAPINE [Suspect]
     Route: 048
  3. METOPROLOL SUCCINATE [Concomitant]
  4. SALURES [Concomitant]
  5. OMEPRAZOLE [Concomitant]
  6. NOZINAN [Concomitant]
  7. CLOZAPINE [Suspect]
     Route: 048
  8. CLOZAPINE [Suspect]
     Route: 048
  9. VALPROATE SODIUM [Concomitant]
  10. ASPIRIN [Concomitant]
  11. ALVEDON [Concomitant]
  12. PARGITAN [Concomitant]

REACTIONS (6)
  - SPINAL FRACTURE [None]
  - HALLUCINATION [None]
  - AGGRESSION [None]
  - PSYCHOTIC DISORDER [None]
  - FATIGUE [None]
  - SELF INJURIOUS BEHAVIOUR [None]
